FAERS Safety Report 10216086 (Version 3)
Quarter: 2014Q3

REPORT INFORMATION
  Report Type: Spontaneous
  Country: US (occurrence: US)
  Receive Date: 20140604
  Receipt Date: 20140902
  Transmission Date: 20150326
  Serious: Yes (Hospitalization, Other)
  Sender: FDA-Public Use
  Company Number: US-BAYER-2014-083061

PATIENT
  Age: 20 Year
  Sex: Female
  Weight: 92.97 kg

DRUGS (3)
  1. YASMIN [Suspect]
     Active Substance: DROSPIRENONE\ETHINYL ESTRADIOL
     Indication: CONTRACEPTION
     Dosage: UNK
     Dates: start: 2002, end: 2006
  2. OCELLA [Suspect]
     Active Substance: DROSPIRENONE\ETHINYL ESTRADIOL
  3. SEROQUEL [Concomitant]
     Active Substance: QUETIAPINE FUMARATE

REACTIONS (9)
  - Cerebrovascular accident [None]
  - Injury [None]
  - Emotional distress [None]
  - General physical health deterioration [None]
  - Brain injury [None]
  - Cerebral infarction [None]
  - Headache [None]
  - Pain [None]
  - Cardiovascular disorder [None]

NARRATIVE: CASE EVENT DATE: 2005
